FAERS Safety Report 6842347-5 (Version None)
Quarter: 2010Q3

REPORT INFORMATION
  Report Type: 
  Country: None (occurrence: None)
  Receive Date: 20100709
  Receipt Date: 20100625
  Transmission Date: 20110219
  Serious: Yes (Hospitalization)
  Sender: FDA-Public Use
  Company Number: 8017697

PATIENT
  Sex: Female
  Weight: 68 kg

DRUGS (7)
  1. CERTOLIZUMAB PEGOL (CDP870 400 MG) [Suspect]
     Indication: CROHN'S DISEASE
     Dosage: SEE IMAGE
     Route: 058
     Dates: start: 20041025, end: 20041122
  2. CERTOLIZUMAB PEGOL (CDP870 400 MG) [Suspect]
     Indication: CROHN'S DISEASE
     Dosage: SEE IMAGE
     Route: 058
     Dates: start: 20041220, end: 20050405
  3. CERTOLIZUMAB PEGOL (CDP870 400 MG) [Suspect]
     Indication: CROHN'S DISEASE
     Dosage: SEE IMAGE
     Route: 058
     Dates: start: 20050509, end: 20060605
  4. SULFASALAZINE [Concomitant]
  5. HELICID /00661201/ [Concomitant]
  6. PARALEN [Concomitant]
  7. ORTHO EVRA [Concomitant]

REACTIONS (7)
  - ABDOMINAL MASS [None]
  - ABSCESS [None]
  - BLOOD ALBUMIN DECREASED [None]
  - CROHN'S DISEASE [None]
  - DISEASE RECURRENCE [None]
  - HAEMOGLOBIN DECREASED [None]
  - INFLAMMATION [None]
